FAERS Safety Report 11986260 (Version 1)
Quarter: 2016Q1

REPORT INFORMATION
  Report Type: Report from Study
  Country: US (occurrence: US)
  Receive Date: 20160202
  Receipt Date: 20160202
  Transmission Date: 20160526
  Serious: Yes (Other)
  Sender: FDA-Public Use
  Company Number: US-AMGEN-USASP2016009363

PATIENT
  Age: 62 Year
  Sex: Female

DRUGS (1)
  1. ENBREL [Suspect]
     Active Substance: ETANERCEPT
     Indication: RHEUMATOID ARTHRITIS
     Dosage: 50 MG, QWK
     Route: 065

REACTIONS (8)
  - Rheumatoid arthritis [Unknown]
  - Urinary tract infection [Unknown]
  - Drug effect incomplete [Unknown]
  - Influenza like illness [Unknown]
  - Asthenia [Unknown]
  - Device failure [Unknown]
  - Fatigue [Unknown]
  - Mobility decreased [Unknown]
